FAERS Safety Report 17646772 (Version 3)
Quarter: 2020Q2

REPORT INFORMATION
  Report Type: Report from Study
  Country: CA (occurrence: CA)
  Receive Date: 20200408
  Receipt Date: 20200430
  Transmission Date: 20200713
  Serious: Yes (Hospitalization)
  Sender: FDA-Public Use
  Company Number: CA-IPSEN BIOPHARMACEUTICALS, INC.-2020-06811

PATIENT
  Age: 46 Year
  Sex: Male
  Weight: 121.1 kg

DRUGS (4)
  1. SOMATULINE AUTOGEL [Suspect]
     Active Substance: LANREOTIDE ACETATE
     Indication: ACROMEGALY
     Route: 058
     Dates: start: 20190808, end: 202004
  2. ANDROGEL [Concomitant]
     Active Substance: TESTOSTERONE
     Indication: HYPOGONADISM
     Route: 062
     Dates: start: 2018
  3. COVERSYL PLUS [Concomitant]
     Active Substance: INDAPAMIDE\PERINDOPRIL
     Indication: HYPERTENSION
     Dosage: 8 / 2.5
     Dates: start: 2018
  4. CABERGOLINE. [Suspect]
     Active Substance: CABERGOLINE
     Indication: ACROMEGALY
     Dates: start: 2018

REACTIONS (2)
  - Pancreatitis [Recovering/Resolving]
  - Gallbladder cholesterolosis [Recovering/Resolving]

NARRATIVE: CASE EVENT DATE: 20200328
